FAERS Safety Report 9195501 (Version 2)
Quarter: 2013Q2

REPORT INFORMATION
  Report Type: Spontaneous
  Country: US (occurrence: US)
  Receive Date: 20130328
  Receipt Date: 20130425
  Transmission Date: 20140414
  Serious: Yes (Hospitalization)
  Sender: FDA-Public Use
  Company Number: US-BIOGENIDEC-2013BI027340

PATIENT
  Age: 49 Year
  Sex: Female

DRUGS (14)
  1. TYSABRI [Suspect]
     Indication: MULTIPLE SCLEROSIS
     Route: 042
     Dates: start: 20091028
  2. LEXAPRO [Concomitant]
  3. SEROQUEL [Concomitant]
  4. RISPERDAL [Concomitant]
  5. AMBIEN [Concomitant]
  6. COLACE [Concomitant]
  7. KLONOPIN [Concomitant]
  8. VITAMIN B12 [Concomitant]
  9. FERROUS SULFATE [Concomitant]
  10. MULTI VITAMIN [Concomitant]
  11. VITAMIN C [Concomitant]
  12. VITAMIN D [Concomitant]
  13. DITROPAN [Concomitant]
  14. AMPYRA [Concomitant]

REACTIONS (2)
  - Urinary tract infection [Unknown]
  - Major depression [Recovered/Resolved]
